FAERS Safety Report 19955809 (Version 3)
Quarter: 2022Q1

REPORT INFORMATION
  Report Type: Report from Study
  Country: US (occurrence: None)
  Receive Date: 20211014
  Receipt Date: 20220125
  Transmission Date: 20220423
  Serious: Yes (Hospitalization, Other)
  Sender: FDA-Public Use
  Company Number: US-ROCHE-2930409

PATIENT
  Age: 56 Year
  Sex: Female
  Weight: 111 kg

DRUGS (6)
  1. ATEZOLIZUMAB [Suspect]
     Active Substance: ATEZOLIZUMAB
     Indication: Invasive breast carcinoma
     Dosage: LAST DOSE ADMINISTERED 17/MAY/2021?PATIENTS RECEIVED ATEZOLIZUMAB IV OVER 30-60 MINUTES ON DAY 1 OF
     Route: 041
     Dates: start: 20210201
  2. PACLITAXEL [Suspect]
     Active Substance: PACLITAXEL
     Indication: Invasive breast carcinoma
     Dosage: LAST ADMINISTERED DATE 17/MAY/2021, TOTAL DRUG ADMINISTERED WAS 180 MG?PACLITAXEL IV OVER 60 MINUTES
     Route: 042
     Dates: start: 20210201
  3. PERTUZUMAB [Suspect]
     Active Substance: PERTUZUMAB
     Indication: Invasive breast carcinoma
     Dosage: LAST ADMINISTERED DATE 17/MAY/2021, TOTAL DRUG ADMINISTERED WAS 420 MG?PATIENT RECEIVED PERTUZUMAB C
     Route: 042
     Dates: start: 20210201
  4. TRASTUZUMAB [Suspect]
     Active Substance: TRASTUZUMAB
     Indication: Invasive breast carcinoma
     Dosage: LAST ADMINISTERED DATE 17/MAY/2021, TOTAL DRUG ADMINISTERED WAS 600 MG?PATIENT RECEIVED TRASTUZUMAB
     Route: 041
     Dates: start: 20210201
  5. CHLORTHALIDONE [Suspect]
     Active Substance: CHLORTHALIDONE
     Indication: Product used for unknown indication
     Route: 065
  6. MAGNESIUM OXIDE [Suspect]
     Active Substance: MAGNESIUM OXIDE
     Indication: Product used for unknown indication
     Route: 065

REACTIONS (5)
  - Vascular device infection [Recovered/Resolved]
  - Hyponatraemia [Recovered/Resolved]
  - Hypovolaemia [Recovered/Resolved]
  - Hyponatraemia [Recovered/Resolved]
  - Dehydration [Recovered/Resolved]

NARRATIVE: CASE EVENT DATE: 20210308
